FAERS Safety Report 19465512 (Version 2)
Quarter: 2022Q1

REPORT INFORMATION
  Report Type: Spontaneous
  Country: US (occurrence: US)
  Receive Date: 20210624
  Receipt Date: 20220120
  Transmission Date: 20220424
  Serious: Yes (Other)
  Sender: FDA-Public Use
  Company Number: US-GILEAD-2021-0537424

PATIENT
  Sex: Female
  Weight: 99.33 kg

DRUGS (12)
  1. TRUVADA [Suspect]
     Active Substance: EMTRICITABINE\TENOFOVIR DISOPROXIL FUMARATE
     Indication: HIV infection
     Dosage: UNK
     Route: 048
     Dates: start: 2009, end: 2016
  2. DESCOVY [Concomitant]
     Active Substance: EMTRICITABINE\TENOFOVIR ALAFENAMIDE FUMARATE
  3. COMBIVIR [Concomitant]
     Active Substance: LAMIVUDINE\ZIDOVUDINE
  4. KALETRA [Concomitant]
     Active Substance: LOPINAVIR\RITONAVIR
  5. NORVIR [Concomitant]
     Active Substance: RITONAVIR
  6. PREZISTA [Concomitant]
     Active Substance: DARUNAVIR ETHANOLATE
  7. RETROVIR [Concomitant]
     Active Substance: ZIDOVUDINE
  8. SUSTIVA [Concomitant]
     Active Substance: EFAVIRENZ
  9. SYMTUZA [Concomitant]
     Active Substance: COBICISTAT\DARUNAVIR\EMTRICITABINE\TENOFOVIR ALAFENAMIDE
  10. CRESTOR [Concomitant]
     Active Substance: ROSUVASTATIN CALCIUM
  11. PRILOSEC [Concomitant]
     Active Substance: OMEPRAZOLE MAGNESIUM
  12. BACTRIM [Concomitant]
     Active Substance: SULFAMETHOXAZOLE\TRIMETHOPRIM

REACTIONS (14)
  - Chronic kidney disease [Not Recovered/Not Resolved]
  - Renal injury [Unknown]
  - Spinal fracture [Not Recovered/Not Resolved]
  - Schizophrenia [Recovered/Resolved]
  - Bone density decreased [Not Recovered/Not Resolved]
  - Pain [Not Recovered/Not Resolved]
  - Emotional distress [Not Recovered/Not Resolved]
  - Anxiety [Not Recovered/Not Resolved]
  - Anhedonia [Not Recovered/Not Resolved]
  - Rib fracture [Not Recovered/Not Resolved]
  - Patella fracture [Not Recovered/Not Resolved]
  - Hypertension [Not Recovered/Not Resolved]
  - Depression [Not Recovered/Not Resolved]
  - Gait disturbance [Unknown]

NARRATIVE: CASE EVENT DATE: 20120101
